FAERS Safety Report 25321704 (Version 1)
Quarter: 2025Q2

REPORT INFORMATION
  Report Type: Report from Study
  Country: IN (occurrence: IN)
  Receive Date: 20250516
  Receipt Date: 20250516
  Transmission Date: 20250716
  Serious: Yes (Other)
  Sender: ALEXION PHARMACEUTICALS
  Company Number: IN-AstraZeneca-CH-00869618A

PATIENT
  Age: 36 Year
  Weight: 65 kg

DRUGS (6)
  1. OLAPARIB [Suspect]
     Active Substance: OLAPARIB
     Dosage: 150 MILLIGRAM, QD
  2. CALCIUM [Concomitant]
     Active Substance: CALCIUM
     Route: 065
  3. VITAMINS [Concomitant]
     Active Substance: VITAMINS
     Route: 065
  4. VITAMIN D [Concomitant]
     Active Substance: VITAMIN D NOS
     Route: 065
  5. LACTULOSE [Concomitant]
     Active Substance: LACTULOSE
  6. Cremaffin [Concomitant]

REACTIONS (7)
  - Intestinal obstruction [Unknown]
  - Abdominal pain upper [Unknown]
  - Constipation [Unknown]
  - Negative thoughts [Unknown]
  - Asthenia [Unknown]
  - Dizziness [Unknown]
  - Anxiety [Unknown]
